FAERS Safety Report 4994941-4 (Version None)
Quarter: 2006Q2

REPORT INFORMATION
  Report Type: 
  Country: None (occurrence: None)
  Receive Date: 20060508
  Receipt Date: 20060503
  Transmission Date: 20061013
  Serious: Yes (Life-Threatening)
  Sender: FDA-Public Use
  Company Number: 2006CG00798

PATIENT
  Age: 62 Year
  Sex: Female

DRUGS (3)
  1. XYLOCAINE [Suspect]
     Route: 065
     Dates: start: 20010719, end: 20010719
  2. DIPRIVAN [Suspect]
     Indication: GENERAL ANAESTHESIA
     Route: 042
     Dates: start: 20010719, end: 20010719
  3. MIDAZOLAM HCL [Suspect]
     Indication: GENERAL ANAESTHESIA
     Route: 042
     Dates: start: 20010719, end: 20010719

REACTIONS (4)
  - AGITATION [None]
  - BRONCHOSPASM [None]
  - DEPRESSED LEVEL OF CONSCIOUSNESS [None]
  - ERYTHEMA [None]
